FAERS Safety Report 13076170 (Version 1)
Quarter: 2016Q4

REPORT INFORMATION
  Report Type: Spontaneous
  Country: US (occurrence: US)
  Receive Date: 20161230
  Receipt Date: 20161230
  Transmission Date: 20170207
  Serious: No
  Sender: FDA-Public Use
  Company Number: US-SUPERNUS PHARMACEUTICALS, INC.-2016SUP00126

PATIENT
  Age: 86 Year
  Sex: Male
  Weight: 81.63 kg

DRUGS (2)
  1. OXTELLAR XR [Suspect]
     Active Substance: OXCARBAZEPINE
     Indication: NEUROPATHY PERIPHERAL
     Dosage: 150 MG 1X DAY
     Route: 048
     Dates: start: 20160621, end: 20160623
  2. OXTELLAR XR [Suspect]
     Active Substance: OXCARBAZEPINE
     Indication: MUSCLE SPASMS

REACTIONS (2)
  - Eye disorder [Recovered/Resolved]
  - Off label use [Unknown]

NARRATIVE: CASE EVENT DATE: 20160621
